FAERS Safety Report 23394474 (Version 1)
Quarter: 2024Q1

REPORT INFORMATION
  Report Type: Spontaneous
  Country: FR (occurrence: FR)
  Receive Date: 20240111
  Receipt Date: 20240111
  Transmission Date: 20240410
  Serious: Yes (Other)
  Sender: FDA-Public Use
  Company Number: None

PATIENT
  Age: 85 Year
  Sex: Female
  Weight: 75 kg

DRUGS (6)
  1. CEFOTAXIME SODIUM [Suspect]
     Active Substance: CEFOTAXIME SODIUM
     Indication: Sepsis
     Dosage: BETWEEN 1 AND 3 G/DAY
     Route: 042
     Dates: start: 20231013, end: 20231017
  2. AMOXICILLIN\CLAVULANIC ACID [Suspect]
     Active Substance: AMOXICILLIN\CLAVULANIC ACID
     Indication: Sepsis
     Dosage: 3 G, QD
     Route: 042
     Dates: start: 20231017, end: 20231022
  3. FASTURTEC [Suspect]
     Active Substance: RASBURICASE
     Indication: Hyperuricaemia
     Dosage: 15 MG, QD
     Route: 042
     Dates: start: 20231014, end: 20231021
  4. ALLOPURINOL [Suspect]
     Active Substance: ALLOPURINOL
     Dosage: 200 MG, QD
     Route: 048
     Dates: start: 20231016, end: 20231021
  5. AMOXICILLIN TRIHYDRATE [Suspect]
     Active Substance: AMOXICILLIN
     Indication: Sepsis
     Dosage: 3 G, QD
     Route: 042
     Dates: start: 20231017, end: 20231018
  6. IMBRUVICA [Suspect]
     Active Substance: IBRUTINIB
     Indication: Mantle cell lymphoma
     Dosage: 3 DF, QD
     Route: 048
     Dates: start: 20231014, end: 20231027

REACTIONS (2)
  - Rash maculo-papular [Not Recovered/Not Resolved]
  - Pruritus [Not Recovered/Not Resolved]

NARRATIVE: CASE EVENT DATE: 20231017
